FAERS Safety Report 9059594 (Version 1)
Quarter: 2013Q1

REPORT INFORMATION
  Report Type: Spontaneous
  Country: US (occurrence: None)
  Receive Date: 20130206
  Receipt Date: 20130206
  Transmission Date: 20140127
  Serious: Yes (Hospitalization)
  Sender: FDA-Public Use
  Company Number: None

PATIENT
  Age: 75 Year
  Sex: Male
  Weight: 77.11 kg

DRUGS (1)
  1. ATORVASTATIN 20MG RANBAXY [Suspect]
     Dosage: 1 TABLET  QHS  PO?COUPLE YEARS ON GENERIC
     Route: 048

REACTIONS (2)
  - Haemorrhage [None]
  - Haematochezia [None]
